FAERS Safety Report 21560922 (Version 1)
Quarter: 2022Q4

REPORT INFORMATION
  Report Type: Spontaneous
  Country: US (occurrence: US)
  Receive Date: 20221107
  Receipt Date: 20221107
  Transmission Date: 20230113
  Serious: No
  Sender: FDA-Public Use
  Company Number: US-TEVA-2022-US-2819096

PATIENT
  Age: 82 Year
  Sex: Male

DRUGS (2)
  1. TESTOSTERONE [Suspect]
     Active Substance: TESTOSTERONE
     Indication: Blood testosterone decreased
     Dosage: 1 %, 25 MILLIGRAM DAILY
     Route: 065
  2. TESTOSTERONE [Suspect]
     Active Substance: TESTOSTERONE
     Dosage: 1 %, 2.5 G
     Route: 065

REACTIONS (3)
  - Product prescribing error [Unknown]
  - Blood testosterone abnormal [Unknown]
  - Overdose [Unknown]
